APPROVED DRUG PRODUCT: TAZAROTENE
Active Ingredient: TAZAROTENE
Strength: 0.05%
Dosage Form/Route: GEL;TOPICAL
Application: A215433 | Product #001 | TE Code: AB
Applicant: COSETTE PHARMACEUTICALS INC
Approved: Sep 13, 2022 | RLD: No | RS: No | Type: RX